FAERS Safety Report 6506286-1 (Version None)
Quarter: 2009Q4

REPORT INFORMATION
  Report Type: 
  Country: None (occurrence: None)
  Receive Date: 20091218
  Receipt Date: 20091210
  Transmission Date: 20100525
  Serious: Yes (Other)
  Sender: FDA-Public Use
  Company Number: ZA-ABBOTT-09P-143-0608614-00

PATIENT
  Sex: Female

DRUGS (5)
  1. HUMIRA [Suspect]
     Indication: CROHN'S DISEASE
     Route: 058
     Dates: start: 20091013, end: 20091013
  2. HUMIRA [Suspect]
     Route: 058
     Dates: start: 20091027, end: 20091027
  3. HUMIRA [Suspect]
     Route: 058
     Dates: start: 20091210
  4. AZATHIOPRINE [Suspect]
     Indication: CROHN'S DISEASE
     Route: 048
     Dates: end: 20091112
  5. PENTASA [Concomitant]
     Indication: CROHN'S DISEASE
     Route: 048

REACTIONS (13)
  - ABDOMINAL PAIN [None]
  - ANAEMIA [None]
  - COLONIC STENOSIS [None]
  - FATIGUE [None]
  - FURUNCLE [None]
  - GASTROINTESTINAL INFECTION [None]
  - INTESTINAL STENOSIS [None]
  - LARGE INTESTINAL ULCER [None]
  - NEUTROPENIA [None]
  - PANCYTOPENIA [None]
  - RECTAL ULCER [None]
  - SWELLING [None]
  - WEIGHT INCREASED [None]
